FAERS Safety Report 15042417 (Version 1)
Quarter: 2018Q2

REPORT INFORMATION
  Report Type: Report from Study
  Country: BR (occurrence: BR)
  Receive Date: 20180621
  Receipt Date: 20180621
  Transmission Date: 20180711
  Serious: Yes (Other)
  Sender: FDA-Public Use
  Company Number: PHHY2018BR016207

PATIENT
  Sex: Female

DRUGS (2)
  1. COSENTYX [Suspect]
     Active Substance: SECUKINUMAB
     Indication: PSORIATIC ARTHROPATHY
     Dosage: 2 PENS OF 150 MG, UNK
     Route: 058
     Dates: start: 20160908
  2. COSENTYX [Suspect]
     Active Substance: SECUKINUMAB
     Indication: PSORIASIS
     Dosage: 2 PENS OF 150 MG, UNK
     Route: 058
     Dates: start: 201611

REACTIONS (4)
  - Decreased immune responsiveness [Unknown]
  - Respiratory tract infection viral [Unknown]
  - Infection susceptibility increased [Unknown]
  - Upper respiratory tract infection [Unknown]
